FAERS Safety Report 17358756 (Version 1)
Quarter: 2020Q1

REPORT INFORMATION
  Report Type: Spontaneous
  Country: US (occurrence: US)
  Receive Date: 20200201
  Receipt Date: 20200201
  Transmission Date: 20200409
  Serious: No
  Sender: FDA-Public Use
  Company Number: US-LANNETT COMPANY, INC.-US-2019LAN001093

PATIENT
  Sex: Female

DRUGS (7)
  1. BACLOFEN (10MG) [Suspect]
     Active Substance: BACLOFEN
     Indication: MUSCLE SPASTICITY
     Dosage: 10 MG, UNK
     Route: 048
     Dates: start: 201907
  2. BACLOFEN (10MG) [Suspect]
     Active Substance: BACLOFEN
     Indication: PAIN IN EXTREMITY
     Dosage: 20 MG, UNK
     Route: 048
     Dates: start: 201908
  3. SYNTHROID [Concomitant]
     Active Substance: LEVOTHYROXINE SODIUM
     Indication: HYPOTHYROIDISM
     Dosage: 137 ?G, QD
     Route: 048
  4. BACLOFEN (10MG) [Suspect]
     Active Substance: BACLOFEN
     Dosage: 30 MG, UNK
     Route: 048
     Dates: start: 201909
  5. NARATRIPTAN [Concomitant]
     Active Substance: NARATRIPTAN HYDROCHLORIDE
     Indication: MIGRAINE
     Dosage: UNK
  6. BACLOFEN (10MG) [Suspect]
     Active Substance: BACLOFEN
     Dosage: 40 MG, UNK
     Dates: start: 201909
  7. OCREVUS [Concomitant]
     Active Substance: OCRELIZUMAB
     Indication: MULTIPLE SCLEROSIS
     Dosage: UNK, EVERY 6 MONTHS
     Route: 042

REACTIONS (3)
  - Stress [Not Recovered/Not Resolved]
  - Fall [Not Recovered/Not Resolved]
  - Therapeutic product effect decreased [Unknown]
